FAERS Safety Report 9772955 (Version 1)
Quarter: 2013Q4

REPORT INFORMATION
  Report Type: Spontaneous
  Country: GB (occurrence: None)
  Receive Date: 20131217
  Receipt Date: 20131217
  Transmission Date: 20140711
  Serious: Yes (Other)
  Sender: FDA-Public Use
  Company Number: AXC-2013-000655

PATIENT
  Age: 23 Year
  Sex: Female

DRUGS (2)
  1. DICYCLOMINE [Suspect]
     Route: 048
     Dates: start: 20131005, end: 20131012
  2. ERYTHROMYCIN ( ERYTHROMYCIN) UNKNOWN [Concomitant]

REACTIONS (5)
  - Hypoaesthesia [None]
  - Feeling abnormal [None]
  - Confusional state [None]
  - Vision blurred [None]
  - Dizziness [None]
